FAERS Safety Report 7705276-0 (Version None)
Quarter: 2011Q3

REPORT INFORMATION
  Report Type: 
  Country: None (occurrence: None)
  Receive Date: 20110824
  Receipt Date: 20110721
  Transmission Date: 20111222
  Serious: No
  Sender: FDA-Public Use
  Company Number: US-MYLANLABS-2011S1015160

PATIENT
  Age: 44 Year
  Sex: Female

DRUGS (4)
  1. VALACYCLOVIR HYDROCHLORIDE [Suspect]
     Route: 048
     Dates: start: 20110623, end: 20110710
  2. VALACYCLOVIR HYDROCHLORIDE [Suspect]
     Indication: HERPES VIRUS INFECTION
     Dosage: BID-TID PRN
     Route: 048
     Dates: start: 20110623, end: 20110710
  3. VALACYCLOVIR HYDROCHLORIDE [Suspect]
     Dosage: BID-TID PRN
     Route: 048
     Dates: start: 20110623, end: 20110710
  4. VALACYCLOVIR HYDROCHLORIDE [Suspect]
     Route: 048
     Dates: start: 20110623, end: 20110710

REACTIONS (6)
  - DRUG INEFFECTIVE [None]
  - NAUSEA [None]
  - MUSCULAR WEAKNESS [None]
  - FATIGUE [None]
  - HEADACHE [None]
  - HERPES VIRUS INFECTION [None]
